FAERS Safety Report 24729256 (Version 1)
Quarter: 2024Q4

REPORT INFORMATION
  Report Type: Report from Study
  Country: BE (occurrence: BE)
  Receive Date: 20241213
  Receipt Date: 20241213
  Transmission Date: 20250115
  Serious: Yes (Death)
  Sender: SANOFI AVENTIS
  Company Number: BE-DialogSolutions-SAAVPROD-PI710424-C2

PATIENT

DRUGS (3)
  1. CLOFARABINE [Suspect]
     Active Substance: CLOFARABINE
     Indication: Chemotherapy
     Dosage: 10 MG/M2, QCY
     Route: 041
  2. IDARUBICIN [Suspect]
     Active Substance: IDARUBICIN
     Indication: Chemotherapy
     Dosage: 10 MG/M2, QD
  3. CYTARABINE [Suspect]
     Active Substance: CYTARABINE
     Indication: Chemotherapy
     Dosage: 100 MG/M2, QD

REACTIONS (1)
  - Toxicity to various agents [Fatal]
